FAERS Safety Report 11515846 (Version 3)
Quarter: 2015Q4

REPORT INFORMATION
  Report Type: Spontaneous
  Country: US (occurrence: US)
  Receive Date: 20150916
  Receipt Date: 20151125
  Transmission Date: 20160304
  Serious: No
  Sender: FDA-Public Use
  Company Number: US-009507513-1509USA006943

PATIENT
  Age: 31 Year
  Sex: Female
  Weight: 63.49 kg

DRUGS (2)
  1. FOLLISTIM [Suspect]
     Active Substance: FOLLITROPIN
     Indication: OVULATION INDUCTION
     Dosage: 150 DF, QD
     Route: 058
     Dates: start: 20150710, end: 20150716
  2. FOLLISTIM [Suspect]
     Active Substance: FOLLITROPIN
     Dosage: 900 DF, UNK

REACTIONS (1)
  - Drug effect incomplete [Unknown]

NARRATIVE: CASE EVENT DATE: 20150710
